FAERS Safety Report 7008734-X (Version None)
Quarter: 2010Q3

REPORT INFORMATION
  Report Type: 
  Country: None (occurrence: None)
  Receive Date: 20100921
  Receipt Date: 20100914
  Transmission Date: 20110219
  Serious: Yes (Life-Threatening)
  Sender: FDA-Public Use
  Company Number: WAES0904USA01931

PATIENT
  Age: 82 Year
  Sex: Male

DRUGS (4)
  1. HYZAAR [Suspect]
     Indication: HYPERTENSION
     Dosage: 1 TAB/DAILY PO
     Route: 048
     Dates: start: 20071119, end: 20080128
  2. CONIEL [Concomitant]
  3. GLIMICRON [Concomitant]
  4. PEPCID RPD [Concomitant]

REACTIONS (2)
  - DRUG INEFFECTIVE [None]
  - PRIMARY HYPERALDOSTERONISM [None]
